FAERS Safety Report 16815243 (Version 8)
Quarter: 2019Q3

REPORT INFORMATION
  Report Type: Spontaneous
  Country: US (occurrence: US)
  Receive Date: 20190917
  Receipt Date: 20190917
  Transmission Date: 20191005
  Serious: No
  Sender: FDA-Public Use
  Company Number: US-RECKITT BENCKISER HEALTHCARE INT LIMITED-RB-81106-2019

PATIENT
  Age: 53 Year
  Sex: Male

DRUGS (1)
  1. MUCINEX [Suspect]
     Active Substance: GUAIFENESIN
     Indication: PRODUCTIVE COUGH
     Dosage: 2 DOSAGE FORM, BID
     Route: 065
     Dates: start: 20190105, end: 20190123

REACTIONS (1)
  - Drug ineffective [Recovered/Resolved]
